FAERS Safety Report 6222619-8 (Version None)
Quarter: 2009Q2

REPORT INFORMATION
  Report Type: 
  Country: None (occurrence: None)
  Receive Date: 20090611
  Receipt Date: 20090603
  Transmission Date: 20091009
  Serious: Yes (Other)
  Sender: FDA-Public Use
  Company Number: JP-NOVOPROD-287410

PATIENT
  Age: 68 Year
  Sex: Male

DRUGS (7)
  1. LEVEMIR [Suspect]
     Indication: TYPE 2 DIABETES MELLITUS
     Dosage: 10 IU, QD
     Route: 058
     Dates: start: 20080428, end: 20081027
  2. LEVEMIR [Suspect]
     Dosage: 10 IU, QD
     Dates: start: 20081201, end: 20090105
  3. LEVEMIR [Suspect]
     Dosage: 5 IU, BID
     Dates: start: 20090105, end: 20090511
  4. NOVORAPID CHU FLEXPEN [Concomitant]
     Indication: TYPE 2 DIABETES MELLITUS
     Dosage: 26 U, QD
     Route: 058
     Dates: start: 20071214
  5. KINEDAK [Concomitant]
     Indication: DIABETES MELLITUS
     Dosage: 150 MG, QD
     Route: 048
     Dates: start: 20090105, end: 20090511
  6. NOVOLIN N [Concomitant]
     Indication: TYPE 2 DIABETES MELLITUS
     Dates: start: 20071213, end: 20080428
  7. LANTUS [Concomitant]
     Indication: TYPE 2 DIABETES MELLITUS
     Dates: start: 20081027, end: 20081201

REACTIONS (1)
  - HEPATIC FUNCTION ABNORMAL [None]
